FAERS Safety Report 8076175-2 (Version None)
Quarter: 2012Q1

REPORT INFORMATION
  Report Type: 
  Country: None (occurrence: None)
  Receive Date: 20120127
  Receipt Date: 20120119
  Transmission Date: 20120608
  Serious: Yes (Hospitalization)
  Sender: FDA-Public Use
  Company Number: JP-BAYER-2011-114757

PATIENT
  Age: 86 Year
  Sex: Female

DRUGS (10)
  1. ETIZOLAM [Suspect]
     Indication: AUTONOMIC NERVOUS SYSTEM IMBALANCE
     Dosage: DAILY DOSE .5 MG
     Route: 048
     Dates: start: 20110601, end: 20111122
  2. ASPIRIN [Suspect]
     Dosage: DAILY DOSE 100 MG
     Route: 048
     Dates: start: 20110830, end: 20111122
  3. EBRANTIL [Concomitant]
     Dosage: UNK
     Route: 048
     Dates: end: 20110920
  4. ZONISAMIDE [Suspect]
     Indication: PRODUCT USED FOR UNKNOWN INDICATION
     Dosage: DAILY DOSE 100 MG
     Route: 048
     Dates: start: 20110920, end: 20111110
  5. ASNAMIN Z (ASPIRIN ALUMINIUM) [Suspect]
     Indication: PRODUCT USED FOR UNKNOWN INDICATION
     Route: 048
  6. TAMSULOSIN HCL [Suspect]
     Indication: NEUROGENIC BLADDER
     Dosage: DAILY DOSE .2 MG
     Route: 048
     Dates: start: 20110920, end: 20111110
  7. PAXIL [Suspect]
     Dosage: DAILY DOSE 10 MG
     Route: 048
     Dates: start: 20110726, end: 20111122
  8. MUCOSTA [Concomitant]
  9. RISEDRONATE SODIUM [Concomitant]
  10. PROBIOTICS [Concomitant]

REACTIONS (6)
  - STEVENS-JOHNSON SYNDROME [None]
  - LOSS OF CONSCIOUSNESS [None]
  - HALLUCINATION [None]
  - DIZZINESS [None]
  - TOXIC EPIDERMAL NECROLYSIS [None]
  - PARKINSON'S DISEASE [None]
